FAERS Safety Report 6897693-6 (Version None)
Quarter: 2010Q3

REPORT INFORMATION
  Report Type: 
  Country: None (occurrence: None)
  Receive Date: 20100729
  Receipt Date: 20100721
  Transmission Date: 20110219
  Serious: Yes (Disabling)
  Sender: FDA-Public Use
  Company Number: 015981

PATIENT
  Sex: Male

DRUGS (2)
  1. NEUPRO [Suspect]
     Dosage: (4 MG), (2 MG)
     Dates: start: 20100101, end: 20100101
  2. NEUPRO [Suspect]
     Dosage: (4 MG), (2 MG)
     Dates: end: 20100101

REACTIONS (6)
  - ABASIA [None]
  - ACTIVITIES OF DAILY LIVING IMPAIRED [None]
  - FOREIGN TRAVEL [None]
  - GAIT DISTURBANCE [None]
  - INCORRECT STORAGE OF DRUG [None]
  - LETHARGY [None]
